FAERS Safety Report 10052347 (Version 1)
Quarter: 2014Q2

REPORT INFORMATION
  Report Type: Spontaneous
  Country: US (occurrence: US)
  Receive Date: 20140402
  Receipt Date: 20140402
  Transmission Date: 20141212
  Serious: Yes (Other)
  Sender: FDA-Public Use
  Company Number: US-ASTRAZENECA-2014SE21531

PATIENT
  Age: 53 Year
  Sex: Female
  Weight: 104.3 kg

DRUGS (7)
  1. NEXIUM [Suspect]
     Indication: GASTROOESOPHAGEAL REFLUX DISEASE
     Route: 048
     Dates: start: 2008
  2. XANAX [Concomitant]
     Indication: ANXIETY
     Route: 048
     Dates: start: 2011
  3. ZOLOFT [Concomitant]
     Indication: DEPRESSION
     Route: 048
  4. PREPHASE [Concomitant]
     Indication: MENOPAUSE
     Dosage: 0.625/5, 1 PILL DAILY
     Route: 048
     Dates: start: 2004
  5. FLOVENT [Concomitant]
     Indication: ASTHMA
     Route: 055
  6. NASACORT AQ [Concomitant]
     Indication: SINUS DISORDER
     Dosage: 1 PUFF EACH NOSTRIL DAILY
     Route: 045
  7. PRILOSEC [Concomitant]
     Indication: GASTROOESOPHAGEAL REFLUX DISEASE
     Route: 048
     Dates: start: 1999, end: 2008

REACTIONS (4)
  - Chest discomfort [Unknown]
  - Ulcer [Unknown]
  - Irritable bowel syndrome [Unknown]
  - Gastritis [Unknown]
